FAERS Safety Report 5913679-X (Version None)
Quarter: 2008Q4

REPORT INFORMATION
  Report Type: 
  Country: None (occurrence: None)
  Receive Date: 20081009
  Receipt Date: 20080930
  Transmission Date: 20090506
  Serious: Yes (Other)
  Sender: FDA-Public Use
  Company Number: CA-JNJFOC-20080606330

PATIENT
  Sex: Male
  Weight: 73.6 kg

DRUGS (6)
  1. REMICADE [Suspect]
     Indication: RHEUMATOID ARTHRITIS
     Route: 042
  2. VENTOLIN [Concomitant]
     Route: 048
  3. SPIRIVA [Concomitant]
     Route: 055
  4. ADVAIR DISKUS 100/50 [Concomitant]
     Route: 048
  5. METHOTREXATE SODIUM [Concomitant]
     Route: 048
  6. FOLIC ACID [Concomitant]

REACTIONS (3)
  - FOOT OPERATION [None]
  - HYPERKERATOSIS [None]
  - LOCALISED INFECTION [None]
